FAERS Safety Report 11984675 (Version 1)
Quarter: 2016Q1

REPORT INFORMATION
  Report Type: Report from Study
  Country: CA (occurrence: CA)
  Receive Date: 20160201
  Receipt Date: 20160201
  Transmission Date: 20160526
  Serious: Yes (Other)
  Sender: FDA-Public Use
  Company Number: PHHY2015CA012733

PATIENT
  Age: 49 Year
  Sex: Female

DRUGS (1)
  1. GILENYA [Suspect]
     Active Substance: FINGOLIMOD HYDROCHLORIDE
     Indication: MULTIPLE SCLEROSIS
     Route: 048
     Dates: start: 20121217

REACTIONS (10)
  - Anxiety [Unknown]
  - Headache [Unknown]
  - Intervertebral disc degeneration [Unknown]
  - Central nervous system lesion [Unknown]
  - Cervical spinal stenosis [Unknown]
  - Pain of skin [Unknown]
  - Leukopenia [Unknown]
  - Sensory disturbance [Unknown]
  - Eyelid ptosis [Unknown]
  - Stress [Unknown]

NARRATIVE: CASE EVENT DATE: 201212
